FAERS Safety Report 15889629 (Version 1)
Quarter: 2019Q1

REPORT INFORMATION
  Report Type: Spontaneous
  Country: JP (occurrence: JP)
  Receive Date: 20190130
  Receipt Date: 20190130
  Transmission Date: 20190417
  Serious: Yes (Hospitalization, Other)
  Sender: FDA-Public Use
  Company Number: PHHY2019JP016554

PATIENT
  Age: 54 Year
  Sex: Female

DRUGS (2)
  1. METHOTREXATE. [Suspect]
     Active Substance: METHOTREXATE
     Indication: SJOGREN^S SYNDROME
  2. METHOTREXATE. [Suspect]
     Active Substance: METHOTREXATE
     Indication: RHEUMATOID ARTHRITIS
     Route: 065

REACTIONS (7)
  - Cerebral infarction [Unknown]
  - Dysarthria [Recovering/Resolving]
  - Herpes zoster infection neurological [Unknown]
  - Vomiting [Unknown]
  - Hemiparesis [Recovering/Resolving]
  - Product use in unapproved indication [Unknown]
  - Nausea [Unknown]
